FAERS Safety Report 6983654-5 (Version None)
Quarter: 2010Q3

REPORT INFORMATION
  Report Type: 
  Country: None (occurrence: None)
  Receive Date: 20100914
  Receipt Date: 20081022
  Transmission Date: 20110219
  Serious: No
  Sender: FDA-Public Use
  Company Number: US-WYE-H06529008

PATIENT
  Sex: Female

DRUGS (1)
  1. ADVIL LIQUI-GELS [Suspect]
     Dosage: 1 LIQUI-GEL X 1
     Route: 048
     Dates: start: 20081022, end: 20081022

REACTIONS (3)
  - ACCIDENTAL EXPOSURE [None]
  - ORAL DISCOMFORT [None]
  - PARAESTHESIA ORAL [None]
